FAERS Safety Report 6370852-7 (Version None)
Quarter: 2009Q3

REPORT INFORMATION
  Report Type: 
  Country: None (occurrence: None)
  Receive Date: 20090923
  Receipt Date: 20070410
  Transmission Date: 20100115
  Serious: No
  Sender: FDA-Public Use
  Company Number: US-ASTRAZENECA-2006UW24654

PATIENT
  Age: 26261 Day
  Sex: Male
  Weight: 71.7 kg

DRUGS (13)
  1. SEROQUEL [Suspect]
     Route: 048
     Dates: start: 20051201
  2. SEROQUEL [Suspect]
     Dosage: 200-600 MG
     Route: 048
     Dates: start: 20050223
  3. HALDOL [Concomitant]
  4. CEFTIN [Concomitant]
  5. CIPRO [Concomitant]
  6. PHENERGAN [Concomitant]
  7. ACTOS [Concomitant]
  8. PRANDIN [Concomitant]
  9. CODEINE SULFATE [Concomitant]
  10. GLUCOPHAGE [Concomitant]
  11. LOMOTIL [Concomitant]
  12. ZELNORM [Concomitant]
  13. ZYPREXA [Concomitant]

REACTIONS (14)
  - ARTHRALGIA [None]
  - BRONCHITIS [None]
  - CHRONIC OBSTRUCTIVE PULMONARY DISEASE [None]
  - CONSTIPATION [None]
  - DIABETES MELLITUS [None]
  - DIARRHOEA [None]
  - DYSURIA [None]
  - HYPERTENSION [None]
  - IRRITABLE BOWEL SYNDROME [None]
  - LIGAMENT SPRAIN [None]
  - MUSCULOSKELETAL PAIN [None]
  - RECTAL HAEMORRHAGE [None]
  - TRACHEITIS [None]
  - VAGINAL INFECTION [None]
